FAERS Safety Report 5709476-0 (Version None)
Quarter: 2008Q2

REPORT INFORMATION
  Report Type: 
  Country: None (occurrence: None)
  Receive Date: 20080417
  Receipt Date: 20080417
  Transmission Date: 20081010
  Serious: Yes (Other)
  Sender: FDA-Public Use
  Company Number: None

PATIENT
  Sex: Male
  Weight: 27.5333 kg

DRUGS (1)
  1. SINGULAIR [Suspect]
     Indication: SLEEP APNOEA SYNDROME
     Dosage: SINGULAIR QD PO
     Route: 048
     Dates: start: 20080228, end: 20080328

REACTIONS (4)
  - AFFECT LABILITY [None]
  - ANXIETY [None]
  - CRYING [None]
  - FEAR [None]
